FAERS Safety Report 5603364-6 (Version None)
Quarter: 2008Q1

REPORT INFORMATION
  Report Type: 
  Country: None (occurrence: None)
  Receive Date: 20080122
  Receipt Date: 20080114
  Transmission Date: 20080703
  Serious: Yes (Other)
  Sender: FDA-Public Use
  Company Number: GXKR2008GB00758

PATIENT
  Age: 67 Year
  Sex: Male
  Weight: 88 kg

DRUGS (3)
  1. SIMVASTATIN [Suspect]
     Indication: BLOOD CHOLESTEROL INCREASED
     Dosage: 20 MG, ORAL
     Route: 048
     Dates: start: 20061214
  2. ASPIRIN [Concomitant]
  3. ATENOLOL [Concomitant]

REACTIONS (2)
  - CONDITION AGGRAVATED [None]
  - TINNITUS [None]
